FAERS Safety Report 4765859-7 (Version None)
Quarter: 2005Q3

REPORT INFORMATION
  Report Type: 
  Country: None (occurrence: None)
  Receive Date: 20050907
  Receipt Date: 20050826
  Transmission Date: 20060218
  Serious: Yes (Hospitalization, Other)
  Sender: FDA-Public Use
  Company Number: HQWYE188430AUG05

PATIENT
  Age: 53 Year
  Sex: Male

DRUGS (8)
  1. RAPAMUNE [Suspect]
     Indication: PROPHYLAXIS AGAINST TRANSPLANT REJECTION
     Dates: start: 20050705, end: 20050712
  2. METHYLPREDNISOLONE [Concomitant]
  3. NYSTATIN [Concomitant]
  4. CHLORHEXIDINE (CHLORHEXIDINE) [Concomitant]
  5. FUROSEMIDE [Concomitant]
  6. NIFEDIPINE [Concomitant]
  7. SEPTRA [Concomitant]
  8. CYCLOSPORINE [Concomitant]

REACTIONS (2)
  - HEPATIC FAILURE [None]
  - HEPATITIS C [None]
